FAERS Safety Report 25984109 (Version 2)
Quarter: 2025Q4

REPORT INFORMATION
  Report Type: Report from Study
  Country: US (occurrence: US)
  Receive Date: 20251031
  Receipt Date: 20251224
  Transmission Date: 20260118
  Serious: Yes (Hospitalization)
  Sender: ALEXION PHARMACEUTICALS
  Company Number: US-ASTRAZENECA-202510NAM028118US

PATIENT
  Age: 69 Year
  Sex: Female

DRUGS (2)
  1. STRENSIQ [Suspect]
     Active Substance: ASFOTASE ALFA
     Indication: Phosphorus metabolism disorder
     Dosage: 1 MILLIGRAM/KILOGRAM  6 TIMES PER WEEK
     Route: 065
  2. STRENSIQ [Suspect]
     Active Substance: ASFOTASE ALFA
     Dosage: 1 MILLIGRAM/KILOGRAM  6 TIMES PER WEEK
     Route: 065

REACTIONS (20)
  - Diabetes mellitus [Unknown]
  - Pyrexia [Unknown]
  - Headache [Unknown]
  - Irritability [Unknown]
  - Injection site reaction [Unknown]
  - Back pain [Unknown]
  - Fatigue [Unknown]
  - Dyspnoea [Unknown]
  - Hypoaesthesia [Unknown]
  - Paraesthesia [Unknown]
  - Muscular weakness [Unknown]
  - Pain [Unknown]
  - Tremor [Unknown]
  - Arthralgia [Unknown]
  - Swelling [Unknown]
  - Anxiety [Unknown]
  - Depression [Unknown]
  - Bone pain [Unknown]
  - Insomnia [Unknown]
  - Product dose omission issue [Unknown]
